FAERS Safety Report 18610985 (Version 2)
Quarter: 2020Q4

REPORT INFORMATION
  Report Type: Report from Study
  Country: KR (occurrence: KR)
  Receive Date: 20201214
  Receipt Date: 20201217
  Transmission Date: 20210114
  Serious: Yes (Hospitalization)
  Sender: FDA-Public Use
  Company Number: KR-EISAI MEDICAL RESEARCH-EC-2020-085061

PATIENT
  Age: 83 Year
  Sex: Male

DRUGS (10)
  1. AVODART SC [Concomitant]
     Indication: BENIGN PROSTATIC HYPERPLASIA
     Route: 048
     Dates: start: 20171107
  2. HARNAL [Concomitant]
     Active Substance: TAMSULOSIN HYDROCHLORIDE
     Indication: BENIGN PROSTATIC HYPERPLASIA
     Route: 048
     Dates: start: 20171107
  3. HYUNDAI TENORMIN [Concomitant]
     Indication: HYPERTENSION
     Route: 048
     Dates: start: 20191226
  4. ARONAMIN C PLUS [Concomitant]
     Indication: PROPHYLAXIS
     Route: 048
     Dates: start: 20171019
  5. MAGNES [Concomitant]
     Indication: PROPHYLAXIS
     Route: 048
     Dates: start: 20200608
  6. NORVASC [Concomitant]
     Active Substance: AMLODIPINE BESYLATE
     Indication: HYPERTENSION
     Route: 048
     Dates: start: 20171107
  7. BARACLE [Concomitant]
     Indication: CHRONIC HEPATITIS B
     Route: 048
     Dates: start: 20190409
  8. LENVIMA [Suspect]
     Active Substance: LENVATINIB
     Indication: HEPATOCELLULAR CARCINOMA
     Route: 048
     Dates: start: 20200608, end: 20201128
  9. HINECOL [Concomitant]
     Active Substance: BETHANECHOL CHLORIDE
     Indication: BENIGN PROSTATIC HYPERPLASIA
     Route: 048
     Dates: start: 20171107
  10. URSA [Concomitant]
     Active Substance: URSODIOL
     Indication: PROPHYLAXIS
     Route: 048
     Dates: start: 20171019

REACTIONS (1)
  - Hypophagia [Recovered/Resolved]

NARRATIVE: CASE EVENT DATE: 20201205
